FAERS Safety Report 7402266-2 (Version None)
Quarter: 2011Q2

REPORT INFORMATION
  Report Type: 
  Country: None (occurrence: None)
  Receive Date: 20110408
  Receipt Date: 20110314
  Transmission Date: 20111010
  Serious: No
  Sender: FDA-Public Use
  Company Number: US-B.I. PHARMACEUTICALS,INC./RIDGEFIELD-2011-BP-08240BP

PATIENT
  Sex: Male

DRUGS (11)
  1. CRESTOR [Concomitant]
     Indication: BLOOD CHOLESTEROL INCREASED
  2. ASPIRIN [Concomitant]
     Indication: PROPHYLAXIS
  3. PRADAXA [Suspect]
     Indication: ATRIAL FIBRILLATION
     Dosage: 300 MG
     Route: 048
     Dates: start: 20110201, end: 20110301
  4. PROTONIX [Concomitant]
     Indication: GASTROOESOPHAGEAL REFLUX DISEASE
  5. LISINOPRIL [Concomitant]
     Indication: HYPERTENSION
  6. AMIODARONE [Suspect]
     Indication: ATRIAL FIBRILLATION
  7. COREG [Concomitant]
     Indication: HYPERTENSION
  8. MAGNESIUM [Concomitant]
     Indication: PROPHYLAXIS
  9. DIGOXIN [Concomitant]
     Indication: ATRIAL FIBRILLATION
  10. LASIX [Concomitant]
     Indication: FLUID RETENTION
  11. ALDACTONE [Concomitant]
     Indication: FLUID RETENTION

REACTIONS (2)
  - DYSPEPSIA [None]
  - HYPOTHYROIDISM [None]
